FAERS Safety Report 21652338 (Version 4)
Quarter: 2023Q1

REPORT INFORMATION
  Report Type: Spontaneous
  Country: US (occurrence: US)
  Receive Date: 20221128
  Receipt Date: 20230222
  Transmission Date: 20230418
  Serious: No
  Sender: FDA-Public Use
  Company Number: US-BRISTOL-MYERS SQUIBB COMPANY-2022-144325

PATIENT
  Age: 83 Year
  Sex: Male

DRUGS (1)
  1. REVLIMID [Suspect]
     Active Substance: LENALIDOMIDE
     Indication: Product used for unknown indication
     Route: 048
     Dates: start: 20210411

REACTIONS (5)
  - Cough [Unknown]
  - Productive cough [Unknown]
  - Gastric infection [Unknown]
  - Gastric disorder [Unknown]
  - Cardiac stress test [Unknown]

NARRATIVE: CASE EVENT DATE: 20221121
